FAERS Safety Report 13617092 (Version 1)
Quarter: 2017Q2

REPORT INFORMATION
  Report Type: Spontaneous
  Country: US (occurrence: US)
  Receive Date: 20170606
  Receipt Date: 20170606
  Transmission Date: 20170830
  Serious: No
  Sender: FDA-Public Use
  Company Number: US-SA-2016SA185134

PATIENT
  Age: 87 Year
  Sex: Female

DRUGS (1)
  1. LANTUS [Suspect]
     Active Substance: INSULIN GLARGINE
     Indication: DIABETES MELLITUS
     Dosage: 20 IN THE MORNING AND THEN I HAVE TO TAKE 5 AT NIGHT
     Route: 065
     Dates: start: 1986

REACTIONS (2)
  - Product use issue [Unknown]
  - Viral upper respiratory tract infection [Not Recovered/Not Resolved]
